FAERS Safety Report 18904132 (Version 1)
Quarter: 2021Q1

REPORT INFORMATION
  Report Type: Spontaneous
  Country: US (occurrence: US)
  Receive Date: 20210217
  Receipt Date: 20210217
  Transmission Date: 20210420
  Serious: Yes (Other)
  Sender: FDA-Public Use
  Company Number: US-SA-2021SA044971

PATIENT
  Age: 68 Year
  Sex: Male

DRUGS (2)
  1. AUBAGIO [Suspect]
     Active Substance: TERIFLUNOMIDE
     Indication: MULTIPLE SCLEROSIS
     Dosage: 14 MG, QD
     Route: 048
     Dates: start: 201907
  2. LISINOPRIL. [Suspect]
     Active Substance: LISINOPRIL

REACTIONS (11)
  - Trigeminal neuralgia [Unknown]
  - Hypertension [Not Recovered/Not Resolved]
  - Toothache [Unknown]
  - Depression [Unknown]
  - Fall [Unknown]
  - Chest injury [Unknown]
  - Head injury [Unknown]
  - Depressed mood [Unknown]
  - Decreased interest [Unknown]
  - Anaphylactic reaction [Unknown]
  - Pharyngeal oedema [Unknown]

NARRATIVE: CASE EVENT DATE: 202101
